FAERS Safety Report 17166007 (Version 2)
Quarter: 2020Q1

REPORT INFORMATION
  Report Type: Spontaneous
  Country: FR (occurrence: FR)
  Receive Date: 20191217
  Receipt Date: 20200302
  Transmission Date: 20200409
  Serious: Yes (Other)
  Sender: FDA-Public Use
  Company Number: FR-ELI_LILLY_AND_COMPANY-FR201912003824

PATIENT
  Age: 46 Year
  Sex: Female

DRUGS (6)
  1. NOCTAMIDE [Suspect]
     Active Substance: LORMETAZEPAM
     Indication: INSOMNIA
     Dosage: 2 TABLETS EVERY EVENING
     Route: 048
     Dates: start: 201605, end: 202001
  2. NOCTAMIDE [Suspect]
     Active Substance: LORMETAZEPAM
     Dosage: 2 MG, DAILY
     Route: 048
     Dates: start: 202001
  3. THERALENE [Suspect]
     Active Substance: TRIMEPRAZINE
     Indication: INSOMNIA
     Dosage: 20 TABLETS EVERY EVENING
     Route: 048
     Dates: start: 201605, end: 202001
  4. SERESTA [Suspect]
     Active Substance: OXAZEPAM
     Indication: INSOMNIA
     Dosage: 6 TABLETS DAILY
     Route: 048
     Dates: start: 201605, end: 202001
  5. SERESTA [Suspect]
     Active Substance: OXAZEPAM
     Dosage: 50 MG, DAILY
     Route: 048
     Dates: start: 202001
  6. PROZAC [Suspect]
     Active Substance: FLUOXETINE HYDROCHLORIDE
     Indication: INSOMNIA
     Dosage: 1 DOSAGE FORM, DAILY
     Route: 048
     Dates: start: 201605, end: 202001

REACTIONS (2)
  - Drug dependence [Recovered/Resolved]
  - Weight increased [Recovered/Resolved with Sequelae]

NARRATIVE: CASE EVENT DATE: 201605
